FAERS Safety Report 9016487 (Version 1)
Quarter: 2013Q1

REPORT INFORMATION
  Report Type: Spontaneous
  Country: US (occurrence: US)
  Receive Date: 20130116
  Receipt Date: 20130116
  Transmission Date: 20140127
  Serious: No
  Sender: FDA-Public Use
  Company Number: US-PFIZER INC-2013018479

PATIENT
  Age: 61 Year
  Sex: Female
  Weight: 136 kg

DRUGS (5)
  1. LIPITOR [Suspect]
     Indication: BLOOD CHOLESTEROL INCREASED
     Dosage: 10 MG, 1X/DAY
     Route: 048
  2. DILTIAZEM [Concomitant]
     Indication: HYPERTENSION
     Dosage: 120 MG, 2X/DAY
  3. AVAPRO [Concomitant]
     Dosage: UNK
  4. CLONIDINE [Concomitant]
     Dosage: 0.1 MG, UNK
  5. BISOPROLOL [Concomitant]
     Dosage: UNK

REACTIONS (2)
  - Cough [Not Recovered/Not Resolved]
  - Nasopharyngitis [Not Recovered/Not Resolved]
